FAERS Safety Report 5029766-7 (Version None)
Quarter: 2006Q2

REPORT INFORMATION
  Report Type: 
  Country: None (occurrence: None)
  Receive Date: 20060504
  Receipt Date: 20060113
  Transmission Date: 20061013
  Serious: No
  Sender: FDA-Public Use
  Company Number: 200610305BWH

PATIENT
  Sex: Male

DRUGS (1)
  1. LEVITRA [Suspect]
     Dosage: 5 MG, TOTAL DAILY, ORAL
     Route: 048

REACTIONS (2)
  - DRUG EFFECT PROLONGED [None]
  - HEADACHE [None]
